FAERS Safety Report 9147402 (Version 2)
Quarter: 2013Q2

REPORT INFORMATION
  Report Type: Report from Study
  Country: JP (occurrence: JP)
  Receive Date: 20130307
  Receipt Date: 20130409
  Transmission Date: 20140414
  Serious: Yes (Hospitalization)
  Sender: FDA-Public Use
  Company Number: JP-GLAXOSMITHKLINE-B0871619A

PATIENT
  Age: 40 Year
  Sex: Female
  Weight: 31 kg

DRUGS (25)
  1. TYKERB [Suspect]
     Indication: BREAST CANCER
     Route: 048
     Dates: start: 20120214, end: 20120304
  2. TYKERB [Suspect]
     Indication: BREAST CANCER
     Route: 048
     Dates: start: 20120403, end: 20120406
  3. TYKERB [Suspect]
     Indication: BREAST CANCER
     Route: 048
     Dates: start: 20120509, end: 20121002
  4. XELODA [Suspect]
     Route: 048
     Dates: start: 20120214, end: 20120227
  5. XELODA [Suspect]
     Route: 048
     Dates: start: 20120403, end: 20120406
  6. XELODA [Suspect]
     Route: 048
     Dates: start: 20120509, end: 20120522
  7. XELODA [Suspect]
     Route: 048
     Dates: start: 20120530, end: 20120612
  8. XELODA [Suspect]
     Route: 048
     Dates: start: 20120620, end: 20120703
  9. XELODA [Suspect]
     Route: 048
     Dates: start: 20120711, end: 20120724
  10. XELODA [Suspect]
     Route: 048
     Dates: start: 20120801, end: 20121002
  11. DUROTEP [Suspect]
     Indication: METASTASES TO BONE
     Route: 061
     Dates: start: 20110419, end: 20121112
  12. ANPEC [Suspect]
     Indication: CANCER PAIN
     Route: 054
     Dates: start: 20120705, end: 20120712
  13. ZOLEDRONIC ACID [Concomitant]
     Indication: BREAST CANCER
     Route: 042
     Dates: start: 20110222, end: 20120822
  14. ZOLEDRONIC ACID [Concomitant]
     Indication: BREAST CANCER
     Route: 042
     Dates: start: 20121010, end: 20121010
  15. LOXOPROFEN [Concomitant]
     Indication: METASTASES TO BONE
     Route: 048
     Dates: start: 20110419, end: 20121112
  16. ROPION [Concomitant]
     Indication: CANCER PAIN
     Route: 042
     Dates: start: 20120306, end: 20120613
  17. RINDERON [Concomitant]
     Indication: MALAISE
     Route: 048
     Dates: start: 20120312, end: 20121112
  18. FENTANYL [Concomitant]
     Indication: CANCER PAIN
     Route: 048
     Dates: start: 20120611, end: 20120612
  19. OPSO [Concomitant]
     Indication: CANCER PAIN
     Route: 048
     Dates: start: 20120516, end: 20120618
  20. OXINORM [Concomitant]
     Indication: CANCER PAIN
     Route: 048
     Dates: start: 20120619, end: 20121112
  21. MILTAX [Concomitant]
     Indication: CANCER PAIN
     Route: 061
     Dates: start: 20121021, end: 20121112
  22. PYDOXAL [Concomitant]
     Indication: PROPHYLAXIS
     Route: 048
     Dates: start: 20120214, end: 20120911
  23. UREPEARL [Concomitant]
     Indication: PROPHYLAXIS
     Route: 061
     Dates: start: 20120214, end: 20120911
  24. MUCOSTA [Concomitant]
     Indication: PROPHYLAXIS AGAINST GASTROINTESTINAL ULCER
     Route: 048
     Dates: start: 20110419, end: 20120911
  25. RACOL [Concomitant]
     Route: 048
     Dates: start: 20120518, end: 20121112

REACTIONS (11)
  - Vomiting [Not Recovered/Not Resolved]
  - Depression [Not Recovered/Not Resolved]
  - Abdominal pain [Not Recovered/Not Resolved]
  - Constipation [Not Recovered/Not Resolved]
  - Pyrexia [Recovered/Resolved]
  - Rash [Recovered/Resolved]
  - Hepatic function abnormal [Not Recovered/Not Resolved]
  - Anaemia [Not Recovered/Not Resolved]
  - Insomnia [Not Recovered/Not Resolved]
  - Confusional state [Recovered/Resolved]
  - Hypocalcaemia [Recovered/Resolved]
